FAERS Safety Report 5873090-7 (Version None)
Quarter: 2008Q3

REPORT INFORMATION
  Report Type: 
  Country: None (occurrence: None)
  Receive Date: 20080902
  Receipt Date: 20080820
  Transmission Date: 20090109
  Serious: Yes (Death)
  Sender: FDA-Public Use
  Company Number: 230662J08CAN

PATIENT
  Age: 53 Year
  Sex: Female
  Weight: 135.9 kg

DRUGS (1)
  1. REBIF [Suspect]
     Indication: RELAPSING-REMITTING MULTIPLE SCLEROSIS
     Dates: start: 20030108, end: 20061201

REACTIONS (1)
  - PULMONARY EMBOLISM [None]
